FAERS Safety Report 17396310 (Version 1)
Quarter: 2020Q1

REPORT INFORMATION
  Report Type: Spontaneous
  Country: US (occurrence: US)
  Receive Date: 20200210
  Receipt Date: 20200210
  Transmission Date: 20200409
  Serious: No
  Sender: FDA-Public Use
  Company Number: US-SA-2020SA031400

PATIENT
  Age: 62 Year
  Sex: Female

DRUGS (1)
  1. DUPIXENT [Suspect]
     Active Substance: DUPILUMAB
     Indication: ECZEMA
     Dosage: 200 MG, QOW
     Dates: start: 201912

REACTIONS (8)
  - Ocular discomfort [Unknown]
  - Lacrimation increased [Unknown]
  - Dry skin [Unknown]
  - Eye disorder [Unknown]
  - Product use issue [Unknown]
  - Visual impairment [Unknown]
  - Condition aggravated [Unknown]
  - Rash [Unknown]

NARRATIVE: CASE EVENT DATE: 20200203
